FAERS Safety Report 25900778 (Version 1)
Quarter: 2025Q4

REPORT INFORMATION
  Report Type: Other
  Country: GB (occurrence: GB)
  Receive Date: 20251009
  Receipt Date: 20251009
  Transmission Date: 20260117
  Serious: Yes (Other)
  Sender: MACLEODS
  Company Number: GB-MHRA-TPP7244187C9815643YC1758890137743

PATIENT

DRUGS (7)
  1. TAMSULOSIN [Suspect]
     Active Substance: TAMSULOSIN
     Indication: Ill-defined disorder
     Route: 048
  2. NITROFURANTOIN [Concomitant]
     Active Substance: NITROFURANTOIN
     Indication: Ill-defined disorder
     Dosage: TAKE ONE CAPSULE TWICE DAILY FOR 7 DAYS, TO TRE...
     Route: 065
     Dates: start: 20250819, end: 20250826
  3. ESOMEPRAZOLE [Concomitant]
     Active Substance: ESOMEPRAZOLE
     Indication: Ill-defined disorder
     Dosage: TAKE ONE DAILY
     Route: 065
     Dates: start: 20250407
  4. POTASSIUM BICARBONATE\SODIUM ALGINATE [Concomitant]
     Active Substance: POTASSIUM BICARBONATE\SODIUM ALGINATE
     Indication: Ill-defined disorder
     Dosage: 5ML - 10ML 4 TIMES/DAY
     Route: 065
     Dates: start: 20250407
  5. TRAMADOL [Concomitant]
     Active Substance: TRAMADOL
     Indication: Ill-defined disorder
     Dosage: ONE DAILY OR TWO
     Route: 065
     Dates: start: 20250407
  6. CLOPIDOGREL [Concomitant]
     Active Substance: CLOPIDOGREL BISULFATE
     Indication: Ill-defined disorder
     Dosage: TAKE ONE ONCE DAILY
     Route: 065
     Dates: start: 20250915
  7. NICOTINE [Concomitant]
     Active Substance: NICOTINE
     Indication: Ill-defined disorder
     Dosage: APPLY DAILY
     Route: 065
     Dates: start: 20250915

REACTIONS (3)
  - Erectile dysfunction [Recovered/Resolved]
  - Urinary hesitation [Unknown]
  - Micturition urgency [Unknown]

NARRATIVE: CASE EVENT DATE: 20250911
